FAERS Safety Report 4835155-8 (Version None)
Quarter: 2005Q4

REPORT INFORMATION
  Report Type: 
  Country: None (occurrence: None)
  Receive Date: 20051122
  Receipt Date: 20050915
  Transmission Date: 20060501
  Serious: Yes (Hospitalization)
  Sender: FDA-Public Use
  Company Number: US-MERCK-0509USA02470

PATIENT
  Age: 67 Year
  Sex: Male
  Weight: 85 kg

DRUGS (5)
  1. VIOXX [Suspect]
     Indication: ARTHRITIS
     Route: 048
     Dates: start: 20010401, end: 20040901
  2. TYLENOL [Concomitant]
     Route: 065
  3. PRILOSEC [Concomitant]
     Route: 065
  4. CLOZAN [Concomitant]
     Indication: NERVOUSNESS
     Route: 065
  5. SONATA [Concomitant]
     Indication: SLEEP DISORDER
     Route: 065

REACTIONS (8)
  - ABDOMINAL PAIN [None]
  - ANXIETY [None]
  - BACK PAIN [None]
  - CEREBRAL ISCHAEMIA [None]
  - CEREBROVASCULAR ACCIDENT [None]
  - GASTRITIS [None]
  - INSOMNIA [None]
  - VOCAL CORD PARESIS [None]
